FAERS Safety Report 12620040 (Version 1)
Quarter: 2016Q3

REPORT INFORMATION
  Report Type: Spontaneous
  Country: US (occurrence: US)
  Receive Date: 20160803
  Receipt Date: 20160803
  Transmission Date: 20161109
  Serious: No
  Sender: FDA-Public Use
  Company Number: US-ENDO PHARMACEUTICALS INC.-2015-005215

PATIENT
  Sex: Male
  Weight: 103.97 kg

DRUGS (2)
  1. TESTOPEL [Suspect]
     Active Substance: TESTOSTERONE
     Indication: HYPOGONADISM
     Dosage: 6 PELLETS (450 MG) INSERTED EVERY THREE MONTHS
     Route: 065
  2. TESTOPEL [Suspect]
     Active Substance: TESTOSTERONE
     Indication: BLOOD TESTOSTERONE DECREASED
     Dosage: 6 PELLETS (450 MG)
     Route: 065
     Dates: start: 201406

REACTIONS (4)
  - Fatigue [Unknown]
  - Asthenia [Unknown]
  - Hot flush [Unknown]
  - Hyperhidrosis [Unknown]
